FAERS Safety Report 10330615 (Version 1)
Quarter: 2014Q3

REPORT INFORMATION
  Report Type: Spontaneous
  Country: IE (occurrence: IE)
  Receive Date: 20140722
  Receipt Date: 20140722
  Transmission Date: 20150326
  Serious: Yes (Death)
  Sender: FDA-Public Use
  Company Number: IE-AMGEN-IRLSP2014053979

PATIENT
  Age: 87 Year
  Sex: Male

DRUGS (7)
  1. MOGADON [Concomitant]
     Active Substance: NITRAZEPAM
  2. PANTUP [Concomitant]
  3. ASPIRIN. [Concomitant]
     Active Substance: ASPIRIN
  4. TRITACE [Concomitant]
     Active Substance: RAMIPRIL
  5. ALLOPURINOL. [Concomitant]
     Active Substance: ALLOPURINOL
  6. ARANESP [Suspect]
     Active Substance: DARBEPOETIN ALFA
     Indication: MALIGNANT MELANOMA
     Dosage: 500 MUG (ONCE OFF DOSE AT PRESENT), UNK
     Route: 058
     Dates: start: 20140603
  7. FRUSEMIDE                          /00032601/ [Concomitant]
     Active Substance: FUROSEMIDE

REACTIONS (1)
  - Death [Fatal]

NARRATIVE: CASE EVENT DATE: 20140606
